FAERS Safety Report 5353747-7 (Version None)
Quarter: 2007Q2

REPORT INFORMATION
  Report Type: 
  Country: None (occurrence: None)
  Receive Date: 20070608
  Receipt Date: 20070608
  Transmission Date: 20071010
  Serious: No
  Sender: FDA-Public Use
  Company Number: None

PATIENT
  Age: 77 Year
  Sex: Female
  Weight: 78 kg

DRUGS (1)
  1. RITUXAN [Suspect]
     Indication: LEUKAEMIA
     Dosage: 92 MG X 1 DOSE IV
     Route: 042
     Dates: start: 20070605, end: 20070605

REACTIONS (2)
  - TACHYCARDIA [None]
  - TREMOR [None]
